FAERS Safety Report 4735456-8 (Version None)
Quarter: 2005Q3

REPORT INFORMATION
  Report Type: 
  Country: None (occurrence: None)
  Receive Date: 20050802
  Receipt Date: 20050726
  Transmission Date: 20060218
  Serious: Yes (Congenital Anomaly)
  Sender: FDA-Public Use
  Company Number: 2005-0008555

PATIENT
  Sex: Male

DRUGS (7)
  1. VIREAD [Suspect]
     Indication: HIV INFECTION
     Dosage: 300 MG, 1 IN 1 D, TRANSPLACENTAL
     Route: 064
     Dates: start: 20040401, end: 20050429
  2. ATAZANAVIR (ATAZANAVIR) [Concomitant]
  3. EPIVIR [Concomitant]
  4. COMBIVIR (ZIDOVUDINE W/LAMIVUDINE) (CAPSULE) [Concomitant]
  5. NORVIR [Concomitant]
  6. ZIDOVUDINE [Concomitant]
  7. KALETRA [Concomitant]

REACTIONS (4)
  - CONGENITAL ANOMALY [None]
  - CONGENITAL URINARY TRACT OBSTRUCTION [None]
  - DRUG EXPOSURE DURING PREGNANCY [None]
  - PYELECTASIA [None]
